FAERS Safety Report 8289598-3 (Version None)
Quarter: 2012Q2

REPORT INFORMATION
  Report Type: 
  Country: None (occurrence: None)
  Receive Date: 20120417
  Receipt Date: 20120405
  Transmission Date: 20120825
  Serious: Yes (Hospitalization)
  Sender: FDA-Public Use
  Company Number: US-SANOFI-AVENTIS-2012SA023930

PATIENT
  Age: 73 Year
  Sex: Male

DRUGS (7)
  1. REMODULIN [Suspect]
     Dosage: 6 MICROGRAMS (1 BREATH) QID
     Route: 055
     Dates: start: 20120301
  2. SILDENAFIL CITRATE [Suspect]
     Route: 065
  3. LASIX [Suspect]
     Route: 065
  4. ASPIRIN [Concomitant]
  5. REMODULIN [Suspect]
     Dosage: 18-54 MICROGRAMS (3-9 BREATHS) QID
     Route: 055
     Dates: start: 20110901
  6. DIGOXIN [Concomitant]
  7. COUMADIN [Concomitant]

REACTIONS (3)
  - CARDIAC FAILURE CONGESTIVE [None]
  - HEADACHE [None]
  - CHEST PAIN [None]
